FAERS Safety Report 22602053 (Version 1)
Quarter: 2023Q2

REPORT INFORMATION
  Report Type: Spontaneous
  Country: AU (occurrence: AU)
  Receive Date: 20230614
  Receipt Date: 20230614
  Transmission Date: 20230722
  Serious: Yes (Hospitalization)
  Sender: FDA-Public Use
  Company Number: AU-ABBVIE-5290823

PATIENT
  Age: 21 Year
  Sex: Male

DRUGS (1)
  1. UPADACITINIB [Suspect]
     Active Substance: UPADACITINIB
     Indication: Ankylosing spondylitis
     Route: 048
     Dates: start: 202108, end: 2023

REACTIONS (3)
  - Seizure [Unknown]
  - Seizure [Unknown]
  - Epilepsy [Unknown]

NARRATIVE: CASE EVENT DATE: 20230101
